FAERS Safety Report 6442772-0 (Version None)
Quarter: 2009Q4

REPORT INFORMATION
  Report Type: 
  Country: None (occurrence: None)
  Receive Date: 20091117
  Receipt Date: 20091105
  Transmission Date: 20100525
  Serious: Yes (Hospitalization, Other)
  Sender: FDA-Public Use
  Company Number: PHEH2009US14609

PATIENT
  Sex: Male

DRUGS (8)
  1. EXJADE [Suspect]
     Indication: HAEMATOLOGICAL MALIGNANCY
     Dosage: 750 MG, QD
     Route: 048
     Dates: start: 20061009
  2. EXJADE [Suspect]
     Indication: IRON OVERLOAD
     Dosage: 2500 MG, QD
     Route: 048
     Dates: start: 20061020
  3. CITALOPRAM [Concomitant]
     Dosage: 20 MG, QD
     Route: 048
  4. DILTIAZEM [Concomitant]
     Dosage: 60 MG, QD
     Route: 048
  5. GUAIFENESIN W/DEXTROMETHORPHAN [Concomitant]
     Dosage: 100-10MG/5, 5 ML TID PRN
     Route: 048
  6. LASIX [Concomitant]
     Dosage: 40 MG, AS DIRECTED
     Route: 048
  7. TRAMADOL HCL [Concomitant]
     Dosage: 50 MG, Q4H
     Route: 048
  8. VICODIN [Concomitant]
     Dosage: 5MG-500MG TID PRN PAIN
     Route: 048

REACTIONS (10)
  - HAEMATOCRIT DECREASED [None]
  - HAEMOGLOBIN DECREASED [None]
  - LYMPHOCYTE COUNT DECREASED [None]
  - MEAN PLATELET VOLUME DECREASED [None]
  - NEUTROPHIL COUNT INCREASED [None]
  - PYREXIA [None]
  - RED BLOOD CELL COUNT DECREASED [None]
  - SURGERY [None]
  - THROMBOCYTOPENIA [None]
  - WHITE BLOOD CELL COUNT DECREASED [None]
